FAERS Safety Report 24048802 (Version 1)
Quarter: 2024Q3

REPORT INFORMATION
  Report Type: Spontaneous
  Country: CN (occurrence: CN)
  Receive Date: 20240704
  Receipt Date: 20240704
  Transmission Date: 20241017
  Serious: Yes (Hospitalization)
  Sender: ROCHE
  Company Number: CN-CHEPLA-2024007881

PATIENT
  Age: 66 Year
  Sex: Female
  Weight: 51.5 kg

DRUGS (3)
  1. XELODA [Suspect]
     Active Substance: CAPECITABINE
     Indication: Adenocarcinoma of colon
     Dosage: APPROVAL NO. GYZZ H20073024, BID (TWO WEEKS)
     Route: 048
     Dates: start: 20240605, end: 20240618
  2. BEVACIZUMAB [Suspect]
     Active Substance: BEVACIZUMAB
     Indication: Adenocarcinoma of colon
     Dosage: INTRAVENOUS DRIP, APPROVAL NO. GYZZ S20190040
     Route: 042
     Dates: start: 20240605, end: 20240605
  3. SODIUM CHLORIDE [Concomitant]
     Active Substance: SODIUM CHLORIDE
     Indication: Medication dilution
     Dosage: INTRAVENOUS DRIP, APPROVAL NO. GYZZ H43020456
     Route: 042
     Dates: start: 20240605, end: 20240605

REACTIONS (1)
  - Pancytopenia [Recovering/Resolving]

NARRATIVE: CASE EVENT DATE: 20240608
